FAERS Safety Report 17967122 (Version 3)
Quarter: 2020Q3

REPORT INFORMATION
  Report Type: Spontaneous
  Country: GB (occurrence: GB)
  Receive Date: 20200701
  Receipt Date: 20200904
  Transmission Date: 20201103
  Serious: Yes (Other)
  Sender: FDA-Public Use
  Company Number: GB-MYLANLABS-2020M1059239

PATIENT
  Sex: Male

DRUGS (1)
  1. ROSUVASTATIN. [Suspect]
     Active Substance: ROSUVASTATIN
     Indication: PRODUCT USED FOR UNKNOWN INDICATION
     Dosage: 5 MILLIGRAM, ONCE A DAY
     Route: 048

REACTIONS (6)
  - Angioedema [Recovered/Resolved]
  - Product substitution issue [Unknown]
  - Urticaria [Recovered/Resolved]
  - Lip swelling [Recovered/Resolved]
  - Malaise [Unknown]
  - Muscle strength abnormal [Unknown]
